FAERS Safety Report 6568396-2 (Version None)
Quarter: 2010Q1

REPORT INFORMATION
  Report Type: 
  Country: None (occurrence: None)
  Receive Date: 20100128
  Receipt Date: 20100119
  Transmission Date: 20100710
  Serious: Yes (Hospitalization)
  Sender: FDA-Public Use
  Company Number: 485878

PATIENT
  Age: 40 Year
  Sex: Female

DRUGS (6)
  1. METHYLPREDNISOLONE [Suspect]
     Indication: IMMUNOSUPPRESSION
     Dosage: 6 MG EVERY OTHER DAY
  2. CYCLOSPORINE [Suspect]
     Indication: IMMUNOSUPPRESSION
  3. AZATHIOPRINE [Suspect]
     Indication: IMMUNOSUPPRESSION
     Dosage: 75 MG
  4. SIROLIMUS [Suspect]
     Indication: IMMUNOSUPPRESSION
     Dosage: 2 MG DAILY FOR 3 DAYS WITH 1 MG DAILY ON THE FOURTH DAY GIVEN CYCLICALLY
  5. TRIMETOPRIM + SULFAMETOXAZOL [Concomitant]
  6. ACYCLOVIR [Concomitant]

REACTIONS (9)
  - BLOOD PRESSURE DIASTOLIC DECREASED [None]
  - CHRONIC ALLOGRAFT NEPHROPATHY [None]
  - COMPLICATIONS OF TRANSPLANTED KIDNEY [None]
  - COUGH [None]
  - HAEMOGLOBIN DECREASED [None]
  - MYCOBACTERIUM AVIUM COMPLEX INFECTION [None]
  - NAUSEA [None]
  - TUBULOINTERSTITIAL NEPHRITIS [None]
  - WEIGHT DECREASED [None]
